FAERS Safety Report 8889667 (Version 2)
Quarter: 2012Q4

REPORT INFORMATION
  Report Type: Report from Study
  Country: AU (occurrence: AU)
  Receive Date: 20121107
  Receipt Date: 20121115
  Transmission Date: 20130627
  Serious: Yes (Other)
  Sender: FDA-Public Use
  Company Number: AU-JNJFOC-20121101060

PATIENT
  Sex: Female

DRUGS (4)
  1. RIVAROXABAN [Suspect]
     Indication: THROMBOSIS PROPHYLAXIS
     Route: 048
     Dates: start: 20120925, end: 20121002
  2. RIVAROXABAN [Suspect]
     Indication: EMBOLISM VENOUS
     Route: 048
     Dates: start: 20120925, end: 20121002
  3. RIVAROXABAN [Suspect]
     Indication: DEEP VEIN THROMBOSIS
     Route: 048
     Dates: start: 20120925, end: 20121002
  4. CELEBREX [Concomitant]
     Indication: OSTEOARTHRITIS

REACTIONS (2)
  - Porphyria [Recovered/Resolved]
  - Rash [Recovered/Resolved]
